FAERS Safety Report 8936319 (Version 1)
Quarter: 2012Q4

REPORT INFORMATION
  Report Type: 
  Country: FR (occurrence: FR)
  Receive Date: 20121130
  Receipt Date: 20121130
  Transmission Date: 20130627
  Serious: Yes (Hospitalization)
  Sender: FDA-Public Use
  Company Number: FR-NAPPMUNDI-GBR-2012-0012169

PATIENT
  Age: 24 Year
  Sex: Female

DRUGS (1)
  1. OXYNORM [Suspect]
     Indication: BACK PAIN
     Route: 065

REACTIONS (8)
  - Drug dependence [Unknown]
  - Vomiting [Unknown]
  - Hyperhidrosis [Unknown]
  - Chills [Unknown]
  - Pallor [Unknown]
  - Anxiety [Unknown]
  - Sleep disorder [Unknown]
  - Pain [Unknown]
